FAERS Safety Report 16484110 (Version 1)
Quarter: 2019Q3

REPORT INFORMATION
  Report Type: Spontaneous
  Country: US (occurrence: US)
  Receive Date: 20190625
  Receipt Date: 20190625
  Transmission Date: 20191004
  Serious: No
  Sender: FDA-Public Use
  Company Number: None

PATIENT

DRUGS (1)
  1. MOXIFLOXACIN IN BSS OPHTHALMIC INJECTION (0.25MG/0.25ML) IN A 1 ML SYR [Suspect]
     Active Substance: MOXIFLOXACIN
     Route: 047

REACTIONS (1)
  - Toxic anterior segment syndrome [None]

NARRATIVE: CASE EVENT DATE: 20190425
